FAERS Safety Report 8772135 (Version 3)
Quarter: 2012Q4

REPORT INFORMATION
  Report Type: 
  Country: US (occurrence: US)
  Receive Date: 20120905
  Receipt Date: 20120918
  Transmission Date: 20130627
  Serious: Yes (Death, Hospitalization, Other)
  Sender: FDA-Public Use
  Company Number: US-BAXTER-2012BAX016150

PATIENT
  Age: 2 Year
  Sex: Female

DRUGS (1)
  1. DIANEAL LOW CALCIUM [Suspect]
     Indication: PERITONEAL DIALYSIS
     Route: 033
     Dates: start: 20100414, end: 20120911

REACTIONS (8)
  - Pulmonary aplasia [Fatal]
  - Renal aplasia [Fatal]
  - Cough [Unknown]
  - Respiratory arrest [Unknown]
  - Respiratory failure [Unknown]
  - Cardiac failure [Unknown]
  - Supraventricular extrasystoles [Unknown]
  - Ventricular extrasystoles [Unknown]
